FAERS Safety Report 6347620-5 (Version None)
Quarter: 2009Q3

REPORT INFORMATION
  Report Type: 
  Country: None (occurrence: None)
  Receive Date: 20090910
  Receipt Date: 20090827
  Transmission Date: 20100115
  Serious: Yes (Other)
  Sender: FDA-Public Use
  Company Number: US-ROCHE-653207

PATIENT
  Sex: Female

DRUGS (4)
  1. PEGASYS [Suspect]
     Indication: HEPATITIS C
     Dosage: PREFILLED SYRINGE
     Route: 065
     Dates: start: 20090814
  2. RIBAVIRIN [Suspect]
     Indication: HEPATITIS C
     Dosage: FORM PILL; DIVIDED DOSES, MISSED DOSE ON 26 AND 27 AUG 2009
     Route: 065
     Dates: start: 20090814
  3. COMPAZINE [Suspect]
     Indication: DRUG USE FOR UNKNOWN INDICATION
     Route: 065
     Dates: start: 20090814
  4. LEVOTHYROXINE SODIUM [Concomitant]

REACTIONS (4)
  - DRUG DOSE OMISSION [None]
  - INAPPROPRIATE AFFECT [None]
  - PARANOIA [None]
  - VOMITING [None]
